FAERS Safety Report 25970618 (Version 1)
Quarter: 2025Q4

REPORT INFORMATION
  Report Type: Spontaneous
  Country: US (occurrence: US)
  Receive Date: 20251028
  Receipt Date: 20251028
  Transmission Date: 20260117
  Serious: No
  Sender: NOVO NORDISK
  Company Number: US-NOVOPROD-1478423

PATIENT
  Age: 12 Year
  Sex: Male

DRUGS (1)
  1. SOGROYA [Suspect]
     Active Substance: SOMAPACITAN-BECO
     Indication: Product used for unknown indication
     Dosage: ONCE WEEKLY GIVEN ON SUNDAY
     Route: 058
     Dates: start: 20250629

REACTIONS (1)
  - Urticaria [Not Recovered/Not Resolved]
